FAERS Safety Report 17042837 (Version 1)
Quarter: 2019Q4

REPORT INFORMATION
  Report Type: Spontaneous
  Country: US (occurrence: US)
  Receive Date: 20191115
  Receipt Date: 20191115
  Transmission Date: 20200122
  Serious: Yes (Other)
  Sender: FDA-Public Use
  Company Number: None

PATIENT
  Age: 67 Year
  Sex: Female
  Weight: 90 kg

DRUGS (1)
  1. ANTI-DIARRHEAL [Suspect]
     Active Substance: LOPERAMIDE HYDROCHLORIDE
     Indication: DIARRHOEA
     Dosage: ?          QUANTITY:12 CAPSULE(S);?
     Route: 048
     Dates: start: 20190806, end: 20190806

REACTIONS (4)
  - Secretion discharge [None]
  - Throat irritation [None]
  - Product use issue [None]
  - Vomiting [None]

NARRATIVE: CASE EVENT DATE: 20190806
